FAERS Safety Report 4622350-6 (Version None)
Quarter: 2005Q1

REPORT INFORMATION
  Report Type: 
  Country: None (occurrence: None)
  Receive Date: 20050325
  Receipt Date: 20050325
  Transmission Date: 20050727
  Serious: Yes (Other)
  Sender: FDA-Public Use
  Company Number: None

PATIENT
  Sex: Female
  Weight: 77 kg

DRUGS (2)
  1. CYTARABINE [Suspect]
     Dosage: 100 MG/M2/DAY BY CIV ON DAYS 1-7
     Route: 042
     Dates: start: 20050208
  2. DAUNORUBICIN HCL [Suspect]
     Dosage: 60 MG/M2/DAY BY IVP ON DAYS 1-3
     Dates: start: 20050208

REACTIONS (12)
  - BLOOD PRESSURE DIASTOLIC DECREASED [None]
  - ESCHAR [None]
  - HAEMOGLOBIN DECREASED [None]
  - INCISION SITE COMPLICATION [None]
  - INCISION SITE HAEMORRHAGE [None]
  - LOCALISED INFECTION [None]
  - NEUTROPENIA [None]
  - PITTING OEDEMA [None]
  - PLATELET COUNT DECREASED [None]
  - RESPIRATORY RATE INCREASED [None]
  - SKIN NECROSIS [None]
  - WOUND [None]
